FAERS Safety Report 19685305 (Version 3)
Quarter: 2021Q3

REPORT INFORMATION
  Report Type: Spontaneous
  Country: IL (occurrence: IL)
  Receive Date: 20210811
  Receipt Date: 20210818
  Transmission Date: 20211014
  Serious: Yes (Life-Threatening, Hospitalization, Other)
  Sender: FDA-Public Use
  Company Number: IL-PFIZER INC-202101005086

PATIENT
  Age: 71 Year
  Sex: Female

DRUGS (3)
  1. FLOUROURACIL [Concomitant]
     Active Substance: FLUOROURACIL
     Indication: COLORECTAL CANCER METASTATIC
     Dosage: UNK UNK, CYCLIC (16TH TREATMENT CYCLE)
  2. CETUXIMAB. [Concomitant]
     Active Substance: CETUXIMAB
     Indication: COLORECTAL CANCER METASTATIC
     Dosage: UNK UNK, CYCLIC (16TH TREATMENT CYCLE)
  3. OXALIPLATIN. [Suspect]
     Active Substance: OXALIPLATIN
     Indication: COLORECTAL CANCER METASTATIC
     Dosage: UNK UNK, CYCLIC (16TH TREATMENT CYCLE)

REACTIONS (2)
  - Hypersensitivity [Unknown]
  - Immune thrombocytopenia [Recovering/Resolving]
